FAERS Safety Report 19988050 (Version 1)
Quarter: 2021Q4

REPORT INFORMATION
  Report Type: Other
  Country: ES (occurrence: ES)
  Receive Date: 20211022
  Receipt Date: 20211022
  Transmission Date: 20220303
  Serious: Yes (Other)
  Sender: FDA-Public Use
  Company Number: ES-AMAROX PHARMA GMBH-AMR2021ES01708

PATIENT
  Age: 72 Year
  Sex: Female

DRUGS (3)
  1. IBANDRONIC ACID [Suspect]
     Active Substance: IBANDRONIC ACID
     Indication: Osteoarthritis
     Dosage: 150 MG MOTHLY
     Route: 065
     Dates: start: 200710
  2. INSULIN GLARGINE [Concomitant]
     Active Substance: INSULIN GLARGINE
     Indication: Type 2 diabetes mellitus
     Dosage: UNK
     Route: 065
  3. METFORMIN [Concomitant]
     Active Substance: METFORMIN HYDROCHLORIDE
     Indication: Type 2 diabetes mellitus
     Dosage: UNK
     Route: 048

REACTIONS (1)
  - Femur fracture [Unknown]

NARRATIVE: CASE EVENT DATE: 20080801
